FAERS Safety Report 5024711-2 (Version None)
Quarter: 2006Q2

REPORT INFORMATION
  Report Type: 
  Country: None (occurrence: None)
  Receive Date: 20060426
  Receipt Date: 20060227
  Transmission Date: 20061013
  Serious: Yes (Other)
  Sender: FDA-Public Use
  Company Number: 2006029523

PATIENT
  Sex: Female

DRUGS (1)
  1. LYRICA [Suspect]
     Indication: INFLAMMATION
     Dosage: (3 IN 1 D)
     Dates: start: 20051201, end: 20060224

REACTIONS (4)
  - HEADACHE [None]
  - INSOMNIA [None]
  - NAUSEA [None]
  - OEDEMA PERIPHERAL [None]
